FAERS Safety Report 9806150 (Version 2)
Quarter: 2014Q1

REPORT INFORMATION
  Report Type: Spontaneous
  Country: PK (occurrence: PK)
  Receive Date: 20140109
  Receipt Date: 20140127
  Transmission Date: 20141002
  Serious: Yes (Death)
  Sender: FDA-Public Use
  Company Number: PK-PFIZER INC-2014003922

PATIENT
  Sex: 0

DRUGS (1)
  1. SUTENT [Suspect]
     Indication: METASTATIC RENAL CELL CARCINOMA
     Dosage: 12.5 MG, FOUR TABLETS
     Route: 048

REACTIONS (3)
  - Cardiopulmonary failure [Fatal]
  - Pyrexia [Unknown]
  - Pain [Unknown]
